FAERS Safety Report 8918028 (Version 1)
Quarter: 2012Q4

REPORT INFORMATION
  Report Type: 
  Country: US (occurrence: US)
  Receive Date: 20121120
  Receipt Date: 20121120
  Transmission Date: 20130627
  Serious: Yes (Other)
  Sender: FDA-Public Use
  Company Number: US-ELI_LILLY_AND_COMPANY-US201211002831

PATIENT
  Sex: Female

DRUGS (4)
  1. HUMALOG 25% LISPRO, 75% NPL [Suspect]
     Indication: TYPE 2 DIABETES MELLITUS
     Dosage: 24 u, each morning
  2. HUMALOG 25% LISPRO, 75% NPL [Suspect]
     Dosage: 14 u, qd
  3. HUMALOG 25% LISPRO, 75% NPL [Suspect]
     Dosage: 14 u, each evening
  4. LIPID MODIFYING AGENTS [Concomitant]
     Indication: BLOOD CHOLESTEROL

REACTIONS (6)
  - Loss of consciousness [Recovered/Resolved]
  - Malaise [Unknown]
  - Musculoskeletal discomfort [Unknown]
  - Infection [Unknown]
  - Somnolence [Unknown]
  - Product tampering [Unknown]
